FAERS Safety Report 6766667-8 (Version None)
Quarter: 2010Q2

REPORT INFORMATION
  Report Type: 
  Country: None (occurrence: None)
  Receive Date: 20100611
  Receipt Date: 20100525
  Transmission Date: 20101027
  Serious: Yes (Death, Hospitalization, Other)
  Sender: FDA-Public Use
  Company Number: PHEH2007US12139

PATIENT
  Sex: Male

DRUGS (29)
  1. AREDIA [Suspect]
     Dosage: 30 MG, QMO
     Dates: start: 20000727, end: 20020502
  2. ZOMETA [Suspect]
     Dosage: 4 MG, QMO
     Dates: start: 20020606, end: 20021226
  3. ZOMETA [Suspect]
     Dosage: 1 MG, QMO
     Dates: start: 20030123, end: 20060505
  4. DECADRON [Suspect]
  5. CHEMOTHERAPEUTICS NOS [Concomitant]
  6. THALIDOMIDE [Concomitant]
  7. STEROIDS NOS [Concomitant]
  8. ARANESP [Concomitant]
  9. PERDIX [Concomitant]
     Dosage: UNK
     Dates: start: 20060607
  10. VICODIN [Concomitant]
     Dosage: UNK
     Dates: start: 20060712
  11. FAMVIR                                  /NET/ [Concomitant]
  12. TRAZODONE [Concomitant]
  13. NEXIUM [Concomitant]
  14. PREDNISONE [Concomitant]
  15. DELTASONE [Concomitant]
  16. KLOR-CON [Concomitant]
  17. DESYREL [Concomitant]
  18. ZOSYN [Concomitant]
  19. BENADRYL ^ACHE^ [Concomitant]
  20. LOMOTIL [Concomitant]
  21. ROXICODONE [Concomitant]
  22. SONATA [Concomitant]
  23. ZOFRAN [Concomitant]
  24. TYLENOL (CAPLET) [Concomitant]
  25. K-DUR [Concomitant]
  26. POTASSIUM [Concomitant]
  27. SYNTHROID [Concomitant]
  28. VITAMIN B6 [Concomitant]
  29. REVLIMID [Concomitant]

REACTIONS (53)
  - ABDOMINAL DISTENSION [None]
  - ANXIETY [None]
  - ASTHENIA [None]
  - ATELECTASIS [None]
  - BACK PAIN [None]
  - BALANCE DISORDER [None]
  - BONE DISORDER [None]
  - CARDIOMEGALY [None]
  - CELLULITIS [None]
  - CERVICAL SPINAL STENOSIS [None]
  - COMPRESSION FRACTURE [None]
  - CONFUSIONAL STATE [None]
  - DEFORMITY [None]
  - DENTAL OPERATION [None]
  - DERMATITIS [None]
  - DISABILITY [None]
  - DYSPNOEA [None]
  - EMOTIONAL DISTRESS [None]
  - FATIGUE [None]
  - FLAT AFFECT [None]
  - GAIT DISTURBANCE [None]
  - HYPOAESTHESIA [None]
  - HYPOKALAEMIA [None]
  - HYPOXIA [None]
  - IMPAIRED HEALING [None]
  - INFECTION [None]
  - JOINT STIFFNESS [None]
  - JOINT SWELLING [None]
  - LEUKOPENIA [None]
  - MALNUTRITION [None]
  - MASS [None]
  - MENTAL STATUS CHANGES [None]
  - METASTASES TO BONE [None]
  - METASTATIC MALIGNANT MELANOMA [None]
  - MOVEMENT DISORDER [None]
  - MULTIPLE MYELOMA [None]
  - NEUROPATHY PERIPHERAL [None]
  - NEUTROPENIC SEPSIS [None]
  - NODULE [None]
  - ORAL DISORDER [None]
  - OSTEONECROSIS OF JAW [None]
  - PAIN [None]
  - PANCYTOPENIA [None]
  - PARAESTHESIA [None]
  - PLASMACYTOMA [None]
  - POLLAKIURIA [None]
  - PSEUDOMONAS INFECTION [None]
  - PYREXIA [None]
  - RENAL FAILURE [None]
  - SINUS TACHYCARDIA [None]
  - SPINAL OSTEOARTHRITIS [None]
  - SPONDYLOLISTHESIS [None]
  - TOOTH EXTRACTION [None]
